FAERS Safety Report 15395869 (Version 1)
Quarter: 2018Q3

REPORT INFORMATION
  Report Type: Spontaneous
  Country: US (occurrence: US)
  Receive Date: 20180918
  Receipt Date: 20180918
  Transmission Date: 20181010
  Serious: Yes (Hospitalization)
  Sender: FDA-Public Use
  Company Number: US-LPDUSPRD-20181672

PATIENT
  Age: 47 Year
  Sex: Female

DRUGS (1)
  1. INJECTAFER [Suspect]
     Active Substance: FERRIC CARBOXYMALTOSE
     Dosage: UNKNOWN TWICE PER MONTH
     Route: 065
     Dates: start: 201804, end: 201808

REACTIONS (6)
  - Gait inability [Recovering/Resolving]
  - Blood potassium decreased [Recovered/Resolved]
  - Malaise [Unknown]
  - Serum ferritin increased [Unknown]
  - Arthralgia [Unknown]
  - Blood phosphorus decreased [Not Recovered/Not Resolved]

NARRATIVE: CASE EVENT DATE: 2018
